FAERS Safety Report 6330996-2 (Version None)
Quarter: 2009Q3

REPORT INFORMATION
  Report Type: 
  Country: None (occurrence: None)
  Receive Date: 20090827
  Receipt Date: 20090818
  Transmission Date: 20100115
  Serious: Yes (Hospitalization)
  Sender: FDA-Public Use
  Company Number: A0731275A

PATIENT
  Age: 52 Year
  Sex: Male
  Weight: 102.3 kg

DRUGS (4)
  1. AVANDIA [Suspect]
     Dosage: 4MG TWICE PER DAY
     Route: 048
     Dates: end: 20060101
  2. LEVEMIR [Concomitant]
     Dates: start: 20030101
  3. GLUCOTROL [Concomitant]
     Dosage: 10MG PER DAY
     Dates: start: 20020101
  4. NOVOLOG [Concomitant]
     Dates: start: 20010101

REACTIONS (5)
  - CHEST PAIN [None]
  - INJURY [None]
  - MYOCARDIAL INFARCTION [None]
  - PAIN [None]
  - TRANSIENT ISCHAEMIC ATTACK [None]
